FAERS Safety Report 6925300-2 (Version None)
Quarter: 2010Q3

REPORT INFORMATION
  Report Type: 
  Country: None (occurrence: None)
  Receive Date: 20100816
  Receipt Date: 20100806
  Transmission Date: 20110219
  Serious: Yes (Hospitalization, Other)
  Sender: FDA-Public Use
  Company Number: NZ-ABBOTT-10P-118-0647898-03

PATIENT
  Sex: Female
  Weight: 46 kg

DRUGS (6)
  1. HUMIRA [Suspect]
     Indication: CROHN'S DISEASE
     Route: 058
     Dates: start: 20090224, end: 20090702
  2. AZATHIOPRINE [Concomitant]
     Indication: CROHN'S DISEASE
  3. ACETAMINOPHEN [Concomitant]
     Indication: PROCEDURAL PAIN
     Dates: start: 20090815
  4. ACETAMINOPHEN [Concomitant]
     Dates: start: 20100126, end: 20100126
  5. DICLOFENAC SODIUM [Concomitant]
     Indication: PROCEDURAL PAIN
     Dates: start: 20090814
  6. CODEINE SULFATE [Concomitant]
     Indication: PROCEDURAL PAIN
     Dosage: 30-60MG AS NEEDED
     Dates: start: 20090818

REACTIONS (3)
  - FISTULA [None]
  - FISTULA DISCHARGE [None]
  - IMPAIRED HEALING [None]
